FAERS Safety Report 16798961 (Version 3)
Quarter: 2019Q4

REPORT INFORMATION
  Report Type: Spontaneous
  Country: US (occurrence: US)
  Receive Date: 20190912
  Receipt Date: 20191111
  Transmission Date: 20200122
  Serious: No
  Sender: FDA-Public Use
  Company Number: US-PFIZER INC-2019098393

PATIENT
  Age: 64 Year
  Sex: Male

DRUGS (3)
  1. RAPAMUNE [Suspect]
     Active Substance: SIROLIMUS
     Dosage: 2 MG, DAILY
     Route: 048
     Dates: start: 2019, end: 2019
  2. RAPAMUNE [Suspect]
     Active Substance: SIROLIMUS
     Dosage: 2 DF, 1X/DAY
     Route: 048
     Dates: start: 2019, end: 2019
  3. RAPAMUNE [Suspect]
     Active Substance: SIROLIMUS
     Indication: LIVER TRANSPLANT
     Dosage: 1 MG, 1X/DAY, (EVERY MORNING 90- DAY SUPPLY)
     Route: 048
     Dates: start: 20190227, end: 2019

REACTIONS (2)
  - Product dose omission [Unknown]
  - Malaise [Unknown]
